FAERS Safety Report 23699584 (Version 3)
Quarter: 2024Q3

REPORT INFORMATION
  Report Type: Spontaneous
  Country: US (occurrence: US)
  Receive Date: 20240402
  Receipt Date: 20240917
  Transmission Date: 20241016
  Serious: Yes (Hospitalization)
  Sender: ELI LILLY AND CO
  Company Number: US-ELI_LILLY_AND_COMPANY-US202403015668

PATIENT
  Age: 54 Year
  Sex: Female

DRUGS (3)
  1. ADCIRCA [Suspect]
     Active Substance: TADALAFIL
     Indication: Pulmonary arterial hypertension
     Dosage: 40 MG, DAILY
     Route: 048
     Dates: start: 202401
  2. REMODULIN [Suspect]
     Active Substance: TREPROSTINIL
     Indication: Pulmonary arterial hypertension
     Dosage: 52 NG/KG/MIN, CONTINUOUS
     Route: 058
     Dates: start: 202312
  3. REMODULIN [Suspect]
     Active Substance: TREPROSTINIL
     Dosage: 85 NKM, CONTINUOUS
     Route: 058

REACTIONS (3)
  - Diarrhoea [Unknown]
  - Nausea [Unknown]
  - Weight abnormal [Unknown]

NARRATIVE: CASE EVENT DATE: 20240317
